FAERS Safety Report 24572177 (Version 1)
Quarter: 2024Q4

REPORT INFORMATION
  Report Type: Spontaneous
  Country: CN (occurrence: CN)
  Receive Date: 20241101
  Receipt Date: 20241101
  Transmission Date: 20250115
  Serious: Yes (Hospitalization, Other)
  Sender: BAXTER
  Company Number: None

PATIENT
  Age: 38 Year
  Sex: Female
  Weight: 61 kg

DRUGS (15)
  1. CYCLOPHOSPHAMIDE [Suspect]
     Active Substance: CYCLOPHOSPHAMIDE
     Indication: Breast cancer female
     Dosage: 0.9 G, ONE TIME IN ONE DAY, DILUTED WITH 100 ML OF 0.9% SODIUM CHLORIDE, THIRD NEOADJUVANT CHEMOTHER
     Route: 041
     Dates: start: 20241009, end: 20241009
  2. CYCLOPHOSPHAMIDE [Suspect]
     Active Substance: CYCLOPHOSPHAMIDE
     Indication: Invasive ductal breast carcinoma
  3. CYCLOPHOSPHAMIDE [Suspect]
     Active Substance: CYCLOPHOSPHAMIDE
     Indication: Neoadjuvant therapy
  4. CYCLOPHOSPHAMIDE [Suspect]
     Active Substance: CYCLOPHOSPHAMIDE
     Indication: Chemotherapy
  5. SODIUM CHLORIDE [Suspect]
     Active Substance: SODIUM CHLORIDE
     Indication: Medication dilution
     Dosage: 100 ML, ONE TIME IN ONE DAY, STRENGTH: 0.9%, USED TO DILUTE 0.9 G OF CYCLOPHOSPHAMIDE
     Route: 041
     Dates: start: 20241009, end: 20241009
  6. SODIUM CHLORIDE [Suspect]
     Active Substance: SODIUM CHLORIDE
     Dosage: 250 ML, ONE TIME IN ONE DAY, STRENGTH: 0.9%, USED TO DILUTE 130 MG OF DOCETAXEL
     Route: 041
     Dates: start: 20241009, end: 20241009
  7. DEXTROSE [Suspect]
     Active Substance: DEXTROSE MONOHYDRATE
     Indication: Medication dilution
     Dosage: 100 ML, ONE TIME IN ONE DAY, STRENGTH: 0.9%, USED TO DILUTE 130 MG OF EPIRUBICIN HYDROCHLORIDE
     Route: 041
     Dates: start: 20241009, end: 20241009
  8. DOCETAXEL [Suspect]
     Active Substance: DOCETAXEL
     Indication: Breast cancer female
     Dosage: 130 MG, ONE TIME IN ONE DAY, DILUTED WITH 250 ML OF 0.9% SODIUM CHLORIDE, THIRD NEOADJUVANT CHEMOTHE
     Route: 041
     Dates: start: 20241009, end: 20241009
  9. DOCETAXEL [Suspect]
     Active Substance: DOCETAXEL
     Indication: Invasive ductal breast carcinoma
  10. DOCETAXEL [Suspect]
     Active Substance: DOCETAXEL
     Indication: Neoadjuvant therapy
  11. DOCETAXEL [Suspect]
     Active Substance: DOCETAXEL
     Indication: Chemotherapy
  12. EPIRUBICIN HYDROCHLORIDE [Suspect]
     Active Substance: EPIRUBICIN HYDROCHLORIDE
     Indication: Breast cancer female
     Dosage: 130 MG, ONE TIME IN ONE DAY, DILUTED WITH 100 ML OF 0.9% SODIUM CHLORIDE, THIRD NEOADJUVANT CHEMOTHE
     Route: 041
     Dates: start: 20241009, end: 20241009
  13. EPIRUBICIN HYDROCHLORIDE [Suspect]
     Active Substance: EPIRUBICIN HYDROCHLORIDE
     Indication: Invasive ductal breast carcinoma
  14. EPIRUBICIN HYDROCHLORIDE [Suspect]
     Active Substance: EPIRUBICIN HYDROCHLORIDE
     Indication: Neoadjuvant therapy
  15. EPIRUBICIN HYDROCHLORIDE [Suspect]
     Active Substance: EPIRUBICIN HYDROCHLORIDE
     Indication: Chemotherapy

REACTIONS (7)
  - Myelosuppression [Recovering/Resolving]
  - Pyrexia [Recovering/Resolving]
  - Asthenia [Recovering/Resolving]
  - Stomatitis [Recovering/Resolving]
  - Noninfective gingivitis [Recovering/Resolving]
  - Oral pain [Recovering/Resolving]
  - Laryngeal pain [Recovering/Resolving]

NARRATIVE: CASE EVENT DATE: 20241016
